FAERS Safety Report 11061238 (Version 1)
Quarter: 2015Q2

REPORT INFORMATION
  Report Type: Spontaneous
  Country: US (occurrence: US)
  Receive Date: 20150424
  Receipt Date: 20150424
  Transmission Date: 20150821
  Serious: No
  Sender: FDA-Public Use
  Company Number: US-009507513-1502USA007722

PATIENT
  Sex: Female

DRUGS (1)
  1. DULERA [Suspect]
     Active Substance: FORMOTEROL FUMARATE DIHYDRATE\MOMETASONE FUROATE
     Dosage: TWO INHALATIONS/ TWICE DAILY
     Route: 055
     Dates: start: 201410

REACTIONS (3)
  - Product quality issue [Unknown]
  - Drug effect incomplete [Unknown]
  - Adverse event [Unknown]
